FAERS Safety Report 22523500 (Version 4)
Quarter: 2025Q1

REPORT INFORMATION
  Report Type: Spontaneous
  Country: JP (occurrence: JP)
  Receive Date: 20230606
  Receipt Date: 20250226
  Transmission Date: 20250409
  Serious: Yes (Hospitalization)
  Sender: AMGEN
  Company Number: JP-Vifor (International) Inc.-VIT-2023-03930

PATIENT
  Age: 78 Year
  Sex: Male
  Weight: 53.8 kg

DRUGS (16)
  1. TAVNEOS [Suspect]
     Active Substance: AVACOPAN
     Indication: Microscopic polyangiitis
     Dosage: 30,MG,BID
     Route: 048
     Dates: start: 20221003, end: 20221220
  2. AMLODIPINE [Suspect]
     Active Substance: AMLODIPINE BESYLATE
     Indication: Product used for unknown indication
     Dosage: 5,MG,QD
     Route: 048
     Dates: end: 20221223
  3. ESOMEPRAZOLE [Suspect]
     Active Substance: ESOMEPRAZOLE
     Indication: Product used for unknown indication
     Dosage: 10,MG,QD
     Route: 048
     Dates: end: 20221223
  4. ATOVAQUONE [Suspect]
     Active Substance: ATOVAQUONE
     Indication: Antifungal prophylaxis
     Dosage: 1500 MG, QD (LIQUID MEDICINE FOR INTERNAL USE)
     Route: 048
     Dates: start: 20221103, end: 20221223
  5. PREDNISOLONE [Concomitant]
     Active Substance: PREDNISOLONE
     Indication: Microscopic polyangiitis
     Dosage: 30 MG, QD
     Route: 048
     Dates: end: 20221012
  6. PREDNISOLONE [Concomitant]
     Active Substance: PREDNISOLONE
     Dosage: 20 MG, QD
     Route: 048
     Dates: start: 20221013, end: 20221019
  7. PREDNISOLONE [Concomitant]
     Active Substance: PREDNISOLONE
     Dosage: 15 MG, QD
     Route: 048
     Dates: start: 20221020, end: 20221102
  8. PREDNISOLONE [Concomitant]
     Active Substance: PREDNISOLONE
     Dosage: 10 MG, QD
     Route: 048
     Dates: start: 20221103, end: 20221120
  9. PREDNISOLONE [Concomitant]
     Active Substance: PREDNISOLONE
     Dosage: 7.5 MG, QD
     Route: 048
     Dates: start: 20221121
  10. LEVOTHYROXINE [Concomitant]
     Active Substance: LEVOTHYROXINE
     Dosage: 25,MUG,QD
     Route: 048
  11. SULFAMETHOXAZOLE\TRIMETHOPRIM [Concomitant]
     Active Substance: SULFAMETHOXAZOLE\TRIMETHOPRIM
     Indication: Antifungal prophylaxis
     Dosage: 240 MG, QD
     Route: 048
     Dates: start: 20221018, end: 20221019
  12. SULFAMETHOXAZOLE\TRIMETHOPRIM [Concomitant]
     Active Substance: SULFAMETHOXAZOLE\TRIMETHOPRIM
     Dosage: 720 MILLIGRAM, QWK
     Route: 048
     Dates: start: 20221020, end: 20221025
  13. RITUXIMAB [Concomitant]
     Active Substance: RITUXIMAB
     Indication: Microscopic polyangiitis
     Dosage: 560 MILLIGRAM, QD
     Route: 040
     Dates: start: 20221011, end: 20221011
  14. RITUXIMAB [Concomitant]
     Active Substance: RITUXIMAB
     Dosage: 560 MILLIGRAM, QD
     Route: 040
     Dates: start: 20221018, end: 20221018
  15. RITUXIMAB [Concomitant]
     Active Substance: RITUXIMAB
     Dosage: 560 MILLIGRAM, QD
     Route: 040
     Dates: start: 20221026, end: 20221026
  16. RITUXIMAB [Concomitant]
     Active Substance: RITUXIMAB
     Dosage: 560 MILLIGRAM, QD
     Route: 040
     Dates: start: 20221102, end: 20221102

REACTIONS (1)
  - Liver disorder [Recovering/Resolving]

NARRATIVE: CASE EVENT DATE: 20221219
